FAERS Safety Report 6897273-2 (Version None)
Quarter: 2010Q3

REPORT INFORMATION
  Report Type: 
  Country: None (occurrence: None)
  Receive Date: 20100802
  Receipt Date: 20070523
  Transmission Date: 20110219
  Serious: No
  Sender: FDA-Public Use
  Company Number: US-PFIZER INC-2007029095

PATIENT
  Sex: Male
  Weight: 68.9 kg

DRUGS (21)
  1. LYRICA [Suspect]
     Indication: PAIN IN EXTREMITY
     Route: 048
     Dates: start: 20070301, end: 20070301
  2. LYRICA [Suspect]
     Indication: HYPOAESTHESIA
  3. LYRICA [Suspect]
  4. NEURONTIN [Suspect]
     Indication: PAIN IN EXTREMITY
     Dates: start: 20070411
  5. NEURONTIN [Suspect]
     Indication: HYPOAESTHESIA
  6. NEURONTIN [Suspect]
  7. NORTAB [Concomitant]
  8. FELODIPINE [Concomitant]
  9. KLONOPIN [Concomitant]
  10. DIAZEPAM [Concomitant]
  11. XANAX [Concomitant]
  12. ZOLOFT [Concomitant]
  13. VYTORIN [Concomitant]
  14. ACETYLSALICYLIC ACID SRT [Concomitant]
  15. VITAMIN E [Concomitant]
  16. FOLIC ACID [Concomitant]
  17. CYMBALTA [Concomitant]
  18. CORTISONE [Concomitant]
  19. LORTAB [Concomitant]
  20. MORPHINE [Concomitant]
  21. KLONOPIN [Concomitant]

REACTIONS (4)
  - BALANCE DISORDER [None]
  - DIZZINESS [None]
  - FATIGUE [None]
  - SOMNOLENCE [None]
